FAERS Safety Report 6372090-0 (Version None)
Quarter: 2009Q3

REPORT INFORMATION
  Report Type: 
  Country: None (occurrence: None)
  Receive Date: 20090917
  Receipt Date: 20090904
  Transmission Date: 20100115
  Serious: Yes (Other)
  Sender: FDA-Public Use
  Company Number: ADR18662009

PATIENT
  Age: 37 Year
  Sex: Female

DRUGS (2)
  1. SALBUTAMOL NEBULISER SOLUTION (MFR: UNKNOWN) [Suspect]
     Indication: ASTHMA
     Dosage: INHALATION
     Route: 055
  2. SEREVENT (MELPHALAN/SALMETEROL) [Concomitant]

REACTIONS (2)
  - ASTHMA [None]
  - CONDITION AGGRAVATED [None]
